FAERS Safety Report 22174377 (Version 3)
Quarter: 2024Q3

REPORT INFORMATION
  Report Type: Spontaneous
  Country: FR (occurrence: FR)
  Receive Date: 20230405
  Receipt Date: 20240916
  Transmission Date: 20241017
  Serious: Yes (Other)
  Sender: AUROBINDO
  Company Number: FR-PFIZER INC-PV202300053112

PATIENT
  Age: 30 Year
  Sex: Male

DRUGS (2)
  1. VORICONAZOLE [Suspect]
     Active Substance: VORICONAZOLE
     Indication: Fusarium infection
     Dosage: UNK
     Route: 048
  2. VORICONAZOLE [Concomitant]
     Active Substance: VORICONAZOLE
     Indication: Fusarium infection
     Dosage: UNK
     Route: 061

REACTIONS (5)
  - Drug ineffective [Unknown]
  - Drug level below therapeutic [Unknown]
  - Condition aggravated [Recovered/Resolved]
  - Skin lesion [Recovered/Resolved]
  - Treatment noncompliance [Unknown]
